FAERS Safety Report 6588319-X (Version None)
Quarter: 2010Q1

REPORT INFORMATION
  Report Type: 
  Country: None (occurrence: None)
  Receive Date: 20100218
  Receipt Date: 20100210
  Transmission Date: 20100710
  Serious: Yes (Other)
  Sender: FDA-Public Use
  Company Number: FR-ROCHE-630721

PATIENT
  Sex: Female

DRUGS (4)
  1. AVASTIN [Suspect]
     Indication: DRUG USE FOR UNKNOWN INDICATION
     Route: 042
     Dates: start: 20081120, end: 20090414
  2. AVASTIN [Suspect]
     Route: 042
     Dates: start: 20090512
  3. TAXOL [Suspect]
     Route: 042
     Dates: start: 20081120, end: 20090414
  4. TAXOL [Suspect]
     Route: 042
     Dates: start: 20090512

REACTIONS (1)
  - PERICARDIAL EFFUSION [None]
